FAERS Safety Report 5603150-7 (Version None)
Quarter: 2008Q1

REPORT INFORMATION
  Report Type: 
  Country: None (occurrence: None)
  Receive Date: 20080125
  Receipt Date: 20080114
  Transmission Date: 20080703
  Serious: Yes (Other)
  Sender: FDA-Public Use
  Company Number: US-PFIZER INC-2007102560

PATIENT
  Sex: Female
  Weight: 106.6 kg

DRUGS (16)
  1. LYRICA [Suspect]
     Indication: NEURALGIA
     Route: 048
     Dates: start: 20070901, end: 20071202
  2. HYDROCODONE BITARTRATE [Suspect]
  3. MUSCLE RELAXANTS [Suspect]
  4. ZOCOR [Concomitant]
  5. VALIUM [Concomitant]
  6. KLONOPIN [Concomitant]
  7. TIZANIDINE HYDROCHLORIDE [Concomitant]
  8. CITALOPRAM HYDROBROMIDE [Concomitant]
  9. FIORICET [Concomitant]
  10. TRAZODONE HCL [Concomitant]
  11. LISINOPRIL [Concomitant]
  12. PROPRANOLOL [Concomitant]
  13. LEVOTHYROXINE SODIUM [Concomitant]
  14. MAXZIDE [Concomitant]
  15. NEXIUM [Concomitant]
  16. ISRADIPINE [Concomitant]

REACTIONS (7)
  - CATARACT OPERATION [None]
  - DRY MOUTH [None]
  - EYE DISORDER [None]
  - IMPAIRED HEALING [None]
  - OEDEMA PERIPHERAL [None]
  - SOMNOLENCE [None]
  - WEIGHT INCREASED [None]
